FAERS Safety Report 23523441 (Version 1)
Quarter: 2024Q1

REPORT INFORMATION
  Report Type: Spontaneous
  Country: US (occurrence: None)
  Receive Date: 20240214
  Receipt Date: 20240214
  Transmission Date: 20240409
  Serious: No
  Sender: FDA-Public Use
  Company Number: None

PATIENT
  Age: 44 Year
  Sex: Female
  Weight: 60.75 kg

DRUGS (1)
  1. DOXYCYCLINE [Suspect]
     Active Substance: DOXYCYCLINE
     Indication: Dental implantation
     Dosage: FREQUENCY : TWICE A DAY;?
     Route: 048
     Dates: start: 20240206, end: 20240212

REACTIONS (1)
  - Mood altered [None]

NARRATIVE: CASE EVENT DATE: 20240211
